FAERS Safety Report 17900501 (Version 1)
Quarter: 2020Q2

REPORT INFORMATION
  Report Type: Spontaneous
  Country: PL (occurrence: PL)
  Receive Date: 20200616
  Receipt Date: 20200616
  Transmission Date: 20200714
  Serious: Yes (Hospitalization)
  Sender: FDA-Public Use
  Company Number: PL-ENDO PHARMACEUTICALS INC-2020-004149

PATIENT
  Age: 51 Year
  Sex: Female

DRUGS (11)
  1. LAMOTRIGINE. [Suspect]
     Active Substance: LAMOTRIGINE
     Dosage: 200 MG, DAILY
     Route: 065
     Dates: start: 2017, end: 2017
  2. ARIPIPRAZOLE. [Suspect]
     Active Substance: ARIPIPRAZOLE
     Indication: DELUSION
     Dosage: 7.5 MG, DAILY
     Route: 065
     Dates: start: 201709, end: 2017
  3. ARIPIPRAZOLE. [Suspect]
     Active Substance: ARIPIPRAZOLE
     Dosage: UPTITRATED OVER 2 WEEKS
     Route: 065
     Dates: start: 2017, end: 2017
  4. ARIPIPRAZOLE. [Suspect]
     Active Substance: ARIPIPRAZOLE
     Dosage: 30 MG, DAILY
     Route: 065
     Dates: start: 2017, end: 2017
  5. LITHIUM. [Suspect]
     Active Substance: LITHIUM
     Indication: MOOD ALTERED
     Dosage: MAXIMUM 1000 MG, DAILY
     Route: 065
     Dates: end: 201709
  6. QUETIAPINE. [Suspect]
     Active Substance: QUETIAPINE
     Dosage: 400 MG, DAILY
     Route: 065
     Dates: start: 2017, end: 2017
  7. LAMOTRIGINE. [Suspect]
     Active Substance: LAMOTRIGINE
     Indication: MOOD ALTERED
     Dosage: 25 MG, DAILY
     Route: 065
     Dates: start: 201709, end: 2017
  8. QUETIAPINE. [Suspect]
     Active Substance: QUETIAPINE
     Indication: PSYCHOTIC DISORDER
     Dosage: 50 MG, DAILY
     Route: 065
     Dates: start: 2017, end: 2017
  9. LAMOTRIGINE. [Suspect]
     Active Substance: LAMOTRIGINE
     Dosage: INCREMENTALLY INCREASED EACH WEEK
     Route: 065
     Dates: start: 2017, end: 2017
  10. LAMOTRIGINE. [Suspect]
     Active Substance: LAMOTRIGINE
     Dosage: 50 MG, DAILY
     Route: 065
     Dates: start: 2017, end: 2017
  11. QUETIAPINE. [Suspect]
     Active Substance: QUETIAPINE
     Dosage: UPTITRATE OVER 9 DAYS
     Route: 065
     Dates: start: 2017, end: 2017

REACTIONS (2)
  - Neuroleptic malignant syndrome [Recovered/Resolved]
  - Off label use [Recovered/Resolved]

NARRATIVE: CASE EVENT DATE: 2017
